FAERS Safety Report 8907068 (Version 1)
Quarter: 2012Q4

REPORT INFORMATION
  Report Type: Report from Study
  Country: JP (occurrence: JP)
  Receive Date: 20121114
  Receipt Date: 20121114
  Transmission Date: 20130627
  Serious: Yes (Hospitalization, Other)
  Sender: FDA-Public Use
  Company Number: JP-VERTEX PHARMACEUTICAL INC.-AE-2012-007649

PATIENT
  Age: 56 Year
  Sex: Male

DRUGS (14)
  1. VX-950 (TELAPREVIR) [Suspect]
     Indication: CHRONIC HEPATITIS C
     Dosage: 2250 mg, UNK
     Route: 048
     Dates: start: 20120207, end: 20120430
  2. PEGINTRON                          /01543001/ [Suspect]
     Indication: CHRONIC HEPATITIS C
     Dosage: 1.5 ?g/kg, qw
     Route: 058
     Dates: start: 20120113, end: 20120316
  3. PEGINTRON                          /01543001/ [Suspect]
     Dosage: 1.2 ?g/kg, qw
     Route: 058
     Dates: start: 20120323, end: 20120504
  4. REBETOL [Suspect]
     Indication: CHRONIC HEPATITIS C
     Dosage: 800 mg, UNK
     Route: 048
     Dates: start: 20120113, end: 20120419
  5. REBETOL [Suspect]
     Dosage: 400 mg, qd
     Route: 048
     Dates: start: 20120420, end: 20120511
  6. SELBEX [Concomitant]
     Dosage: 150 mg, UNK
     Route: 048
     Dates: start: 20120207
  7. BRANUTE [Concomitant]
     Route: 048
     Dates: start: 20120302, end: 20120328
  8. BRANUTE [Concomitant]
     Route: 048
  9. HIRUDOID                           /00723701/ [Concomitant]
     Dosage: UNK
     Route: 061
     Dates: start: 20120420
  10. ADOFEED [Concomitant]
     Route: 061
  11. LIVOSTIN [Concomitant]
     Route: 045
  12. POSTERISAN                         /00028601/ [Concomitant]
     Dosage: UNK
     Route: 061
     Dates: start: 20120323
  13. ALLEGRA [Concomitant]
     Dosage: 120 mg, qd
     Route: 048
     Dates: start: 20120413
  14. LOXOPROFEN [Concomitant]
     Route: 048
     Dates: start: 20120207

REACTIONS (3)
  - Hepatic function abnormal [Recovered/Resolved]
  - Haemoglobin decreased [Recovered/Resolved]
  - Erythema [Recovered/Resolved]
